FAERS Safety Report 13569236 (Version 1)
Quarter: 2017Q2

REPORT INFORMATION
  Report Type: Spontaneous
  Country: US (occurrence: US)
  Receive Date: 20170522
  Receipt Date: 20170522
  Transmission Date: 20170830
  Serious: Yes (Hospitalization)
  Sender: FDA-Public Use
  Company Number: US-MALLINCKRODT-T201702112

PATIENT
  Sex: Female
  Weight: 47 kg

DRUGS (5)
  1. BACLOFEN. [Suspect]
     Active Substance: BACLOFEN
     Indication: PRODUCT USED FOR UNKNOWN INDICATION
     Dosage: 20 MG, TID
     Route: 048
  2. GABLOFEN [Suspect]
     Active Substance: BACLOFEN
     Dosage: 49.79 ?G, QD
     Route: 037
     Dates: start: 20161228
  3. GABLOFEN [Suspect]
     Active Substance: BACLOFEN
     Indication: MUSCLE SPASTICITY
     Dosage: 59.92 ?G, QD
     Route: 037
     Dates: start: 20161209
  4. ZOFRAN [Concomitant]
     Active Substance: ONDANSETRON HYDROCHLORIDE
     Dosage: 4 MG, 5X PER DAY
  5. GABLOFEN [Suspect]
     Active Substance: BACLOFEN
     Dosage: 71.97 ?G, QD
     Route: 037
     Dates: start: 20161228

REACTIONS (4)
  - Seizure [Unknown]
  - Dyspnoea [Unknown]
  - Muscle spasticity [Unknown]
  - Dysphagia [Unknown]
